FAERS Safety Report 4614301-5 (Version None)
Quarter: 2005Q1

REPORT INFORMATION
  Report Type: 
  Country: None (occurrence: None)
  Receive Date: 20050315
  Receipt Date: 20050228
  Transmission Date: 20050727
  Serious: Yes (Hospitalization, Other)
  Sender: FDA-Public Use
  Company Number: USA041081000

PATIENT
  Age: 52 Year
  Sex: Female
  Weight: 89 kg

DRUGS (3)
  1. HUMALOG [Suspect]
     Indication: DIABETES MELLITUS
     Dates: start: 19960101
  2. HUMULIN N [Suspect]
     Indication: DIABETES MELLITUS
     Dosage: 10 U/1 AT BEDTIME
     Dates: start: 19940101
  3. PREDNISONE [Concomitant]

REACTIONS (3)
  - DRUG INEFFECTIVE [None]
  - LIVER DISORDER [None]
  - PHARMACEUTICAL PRODUCT COMPLAINT [None]
